FAERS Safety Report 24758940 (Version 4)
Quarter: 2025Q4

REPORT INFORMATION
  Report Type: Spontaneous
  Country: JP (occurrence: JP)
  Receive Date: 20241220
  Receipt Date: 20251118
  Transmission Date: 20260119
  Serious: Yes (Hospitalization, Other)
  Sender: ASTELLAS
  Company Number: JP-ASTELLAS-2024-AER-023165

PATIENT
  Age: 71 Year
  Sex: Female
  Weight: 72 kg

DRUGS (10)
  1. PADCEV [Suspect]
     Active Substance: ENFORTUMAB VEDOTIN-EJFV
     Indication: Bladder cancer
     Dosage: 91.5MG/DOSE (DAY 1, 8)
     Route: 042
     Dates: start: 20241106, end: 20241113
  2. PADCEV [Suspect]
     Active Substance: ENFORTUMAB VEDOTIN-EJFV
     Indication: Malignant neoplasm of renal pelvis
     Route: 042
  3. PADCEV [Suspect]
     Active Substance: ENFORTUMAB VEDOTIN-EJFV
     Route: 042
  4. KEYTRUDA [Suspect]
     Active Substance: PEMBROLIZUMAB
     Indication: Transitional cell carcinoma
     Dosage: DAY 1
     Route: 042
     Dates: start: 20241106, end: 20241106
  5. KEYTRUDA [Suspect]
     Active Substance: PEMBROLIZUMAB
     Route: 042
     Dates: start: 20241204, end: 20241204
  6. Glimepiride tablet 1mg [Concomitant]
     Indication: Hyperglycaemia
     Dosage: 1 TABLET, ONCE DAILY, TAKEN IMMEDIATELY AFTER BREAKFAST
     Route: 048
     Dates: end: 20241120
  7. Tenelia tablet 20mg [Concomitant]
     Indication: Hyperglycaemia
     Dosage: 1 TABLET, ONCE DAILY, TAKEN IMMEDIATELY AFTER BREAKFAST
     Route: 048
     Dates: end: 20241120
  8. Rosuvastatin tablet 2.5mg [Concomitant]
     Indication: Product used for unknown indication
     Dosage: 1 TABLET ONCE DAILY, AFTER DINNER, ADMINISTERED EVERY OTHER DAY
     Route: 065
  9. Heparinoid Oil-Based Cream 0.3? [Concomitant]
     Indication: Product used for unknown indication
     Route: 065
  10. Amlodipine OD tablet 2.5mg [Concomitant]
     Indication: Hypertension
     Dosage: 1 TABLET, ONCE DAILY, AFTER BREAKFAST
     Route: 065
     Dates: start: 20241111

REACTIONS (2)
  - Hyperglycaemia [Recovered/Resolved]
  - Erythema multiforme [Recovered/Resolved]

NARRATIVE: CASE EVENT DATE: 20241120
